FAERS Safety Report 6809313-7 (Version None)
Quarter: 2010Q2

REPORT INFORMATION
  Report Type: 
  Country: None (occurrence: None)
  Receive Date: 20100630
  Receipt Date: 20100618
  Transmission Date: 20101027
  Serious: Yes (Other)
  Sender: FDA-Public Use
  Company Number: US-TYCO HEALTHCARE/MALLINCKRODT-T201001519

PATIENT
  Age: 49 Year

DRUGS (1)
  1. EXALGO [Suspect]
     Indication: BACK PAIN
     Dosage: 64 MG, UNK

REACTIONS (3)
  - BIPOLAR DISORDER [None]
  - HALLUCINATION [None]
  - SUICIDAL IDEATION [None]
